FAERS Safety Report 7283188-7 (Version None)
Quarter: 2011Q1

REPORT INFORMATION
  Report Type: 
  Country: None (occurrence: None)
  Receive Date: 20110209
  Receipt Date: 20110125
  Transmission Date: 20110831
  Serious: Yes (Hospitalization)
  Sender: FDA-Public Use
  Company Number: PHHY2011MX06730

PATIENT
  Sex: Male

DRUGS (3)
  1. CO-DIOVAN [Suspect]
     Indication: HYPERTENSION
     Dosage: 160 MG VALS AND 25 MG HYDR
     Route: 048
     Dates: start: 20101229, end: 20101231
  2. BUMETANIDE [Concomitant]
  3. ASPIRIN [Concomitant]

REACTIONS (1)
  - PNEUMONIA [None]
